FAERS Safety Report 19403040 (Version 1)
Quarter: 2021Q2

REPORT INFORMATION
  Report Type: Spontaneous
  Country: US (occurrence: US)
  Receive Date: 20210610
  Receipt Date: 20210610
  Transmission Date: 20210717
  Serious: Yes (Other)
  Sender: FDA-Public Use
  Company Number: None

PATIENT
  Age: 53 Year
  Sex: Female
  Weight: 94.05 kg

DRUGS (2)
  1. YUVAFEM [Suspect]
     Active Substance: ESTRADIOL HEMIHYDRATE
     Indication: GENITOURINARY SYNDROME OF MENOPAUSE
     Route: 067
     Dates: start: 20210320, end: 20210323
  2. ESTRADIOL 10 MCG [Concomitant]

REACTIONS (6)
  - Application site pruritus [None]
  - Device malfunction [None]
  - Vulvovaginal burning sensation [None]
  - Product substitution issue [None]
  - Application site pain [None]
  - Therapy cessation [None]

NARRATIVE: CASE EVENT DATE: 20210320
